FAERS Safety Report 5742067-4 (Version None)
Quarter: 2008Q2

REPORT INFORMATION
  Report Type: 
  Country: None (occurrence: None)
  Receive Date: 20080515
  Receipt Date: 20080428
  Transmission Date: 20081010
  Serious: No
  Sender: FDA-Public Use
  Company Number: US023390

PATIENT
  Age: 55 Year
  Sex: Male

DRUGS (2)
  1. AMRIX [Suspect]
     Indication: ARTHRALGIA
     Dosage: 30 MG QD ORAL
     Route: 048
     Dates: start: 20080424
  2. AMRIX [Suspect]
     Indication: POST PROCEDURAL COMPLICATION
     Dosage: 30 MG QD ORAL
     Route: 048
     Dates: start: 20080424

REACTIONS (6)
  - ASTHENIA [None]
  - DYSKINESIA [None]
  - EXTENSOR PLANTAR RESPONSE [None]
  - EYE ROLLING [None]
  - IRRITABILITY [None]
  - TREMOR [None]
